FAERS Safety Report 5604380-0 (Version None)
Quarter: 2008Q1

REPORT INFORMATION
  Report Type: 
  Country: None (occurrence: None)
  Receive Date: 20080128
  Receipt Date: 20080114
  Transmission Date: 20080703
  Serious: Yes (Death)
  Sender: FDA-Public Use
  Company Number: US-ELI_LILLY_AND_COMPANY-US200801003623

PATIENT
  Age: 55 Year
  Sex: Female
  Weight: 136.5 kg

DRUGS (4)
  1. CYMBALTA [Suspect]
  2. ZYPREXA [Suspect]
  3. TRILEPTAL [Concomitant]
  4. DEPAKOTE [Concomitant]

REACTIONS (1)
  - DEATH [None]
